FAERS Safety Report 8206912-5 (Version None)
Quarter: 2012Q1

REPORT INFORMATION
  Report Type: 
  Country: None (occurrence: None)
  Receive Date: 20120314
  Receipt Date: 20120305
  Transmission Date: 20120608
  Serious: Yes (Death, Hospitalization)
  Sender: FDA-Public Use
  Company Number: US-JNJFOC-20120302711

PATIENT
  Sex: Female
  Weight: 72.58 kg

DRUGS (3)
  1. UNKNOWN MEDICATION [Concomitant]
     Route: 065
  2. REMICADE [Suspect]
     Indication: RHEUMATOID ARTHRITIS
     Route: 042
     Dates: start: 20090101
  3. DILAUDID [Suspect]
     Indication: PAIN
     Route: 065
     Dates: start: 20120207, end: 20120207

REACTIONS (5)
  - MULTI-ORGAN FAILURE [None]
  - CHOLELITHIASIS [None]
  - PANCREATITIS [None]
  - FREQUENT BOWEL MOVEMENTS [None]
  - SEPTIC SHOCK [None]
